FAERS Safety Report 6598186-6 (Version None)
Quarter: 2010Q1

REPORT INFORMATION
  Report Type: 
  Country: None (occurrence: None)
  Receive Date: 20100224
  Receipt Date: 20050920
  Transmission Date: 20100710
  Serious: Yes (Disabling, Other)
  Sender: FDA-Public Use
  Company Number: US-ALLERGAN-200407879

PATIENT
  Age: 55 Year
  Sex: Female

DRUGS (6)
  1. BOTOX [Suspect]
     Indication: FACIAL SPASM
     Dosage: 8.75UNITS, SINGLE
     Route: 030
     Dates: start: 19960419, end: 19960419
  2. BOTOX [Suspect]
     Dosage: 12.5UNITS, SINGLE
     Route: 030
     Dates: start: 19960808, end: 19960808
  3. BOTOX [Suspect]
     Route: 030
     Dates: start: 19960815, end: 19960815
  4. BOTOX [Suspect]
     Dosage: 25UNITS, SINGLE
     Route: 030
     Dates: start: 19960924, end: 19960924
  5. BOTOX [Suspect]
     Dosage: 25UNITS, SINGLE
     Route: 030
     Dates: start: 19961212, end: 19961212
  6. ATENOLOL [Concomitant]
     Indication: DRUG USE FOR UNKNOWN INDICATION

REACTIONS (8)
  - DEPRESSION [None]
  - DROOLING [None]
  - DRY EYE [None]
  - DYSARTHRIA [None]
  - FACIAL PALSY [None]
  - HEAD DEFORMITY [None]
  - LAGOPHTHALMOS [None]
  - THERAPEUTIC RESPONSE DECREASED [None]
